FAERS Safety Report 4391979-5 (Version None)
Quarter: 2004Q3

REPORT INFORMATION
  Report Type: 
  Country: None (occurrence: None)
  Receive Date: 20040701
  Receipt Date: 20040616
  Transmission Date: 20050211
  Serious: Yes (Hospitalization, Other)
  Sender: FDA-Public Use
  Company Number: US_0402100510

PATIENT
  Age: 63 Year
  Sex: Male

DRUGS (9)
  1. PERMAX [Suspect]
     Indication: PARKINSON'S DISEASE
     Dosage: 1 MG/5 DAY
     Dates: start: 19970101
  2. SINEMET [Concomitant]
  3. CARBIDOPA W/LEVODOPA [Concomitant]
  4. EFFEXOR [Concomitant]
  5. ASPIRIN [Concomitant]
  6. PLAVIX [Concomitant]
  7. DIGOXIN [Concomitant]
  8. COMTAN [Concomitant]
  9. LASIX [Concomitant]

REACTIONS (18)
  - ARTHRALGIA [None]
  - ASTHENIA [None]
  - CARDIAC FAILURE [None]
  - CARDIAC VALVE DISEASE [None]
  - CARDIOMEGALY [None]
  - CELLULITIS [None]
  - CHEST PAIN [None]
  - DEAFNESS [None]
  - DEPRESSION [None]
  - DIPLOPIA [None]
  - FALL [None]
  - HOARSENESS [None]
  - INTERVERTEBRAL DISC DISORDER [None]
  - MITRAL VALVE DISEASE [None]
  - NERVOUSNESS [None]
  - OEDEMA PERIPHERAL [None]
  - PAIN IN EXTREMITY [None]
  - SKIN DISCOLOURATION [None]
